FAERS Safety Report 22349286 (Version 1)
Quarter: 2023Q2

REPORT INFORMATION
  Report Type: Spontaneous
  Country: FR (occurrence: FR)
  Receive Date: 20230522
  Receipt Date: 20230522
  Transmission Date: 20230721
  Serious: Yes (Hospitalization)
  Sender: FDA-Public Use
  Company Number: None

PATIENT
  Age: 59 Year
  Sex: Female
  Weight: 70 kg

DRUGS (9)
  1. PACLITAXEL [Suspect]
     Active Substance: PACLITAXEL
     Indication: Breast cancer
     Dates: start: 20221227, end: 20221227
  2. CETIRIZINE [Suspect]
     Active Substance: CETIRIZINE HYDROCHLORIDE
     Indication: Premedication
     Dates: start: 20221227, end: 20221227
  3. LACTULOSE [Concomitant]
     Active Substance: LACTULOSE
  4. DOLIPRANE [Concomitant]
     Active Substance: ACETAMINOPHEN
  5. ALPRAZOLAM [Concomitant]
     Active Substance: ALPRAZOLAM
  6. PEMBROLIZUMAB [Concomitant]
     Active Substance: PEMBROLIZUMAB
  7. CARBOPLATIN [Concomitant]
     Active Substance: CARBOPLATIN
  8. PALONOSETRON HYDROCHLORIDE [Concomitant]
     Active Substance: PALONOSETRON HYDROCHLORIDE
  9. VALPROIC ACID [Concomitant]
     Active Substance: VALPROIC ACID
     Dosage: 500 MG, PROLONGED-RELEASE SCORED FILM-COATED TABLETS

REACTIONS (1)
  - Rash vesicular [Recovered/Resolved]

NARRATIVE: CASE EVENT DATE: 20221231
